FAERS Safety Report 21568985 (Version 1)
Quarter: 2022Q4

REPORT INFORMATION
  Report Type: Report from Study
  Country: US (occurrence: US)
  Receive Date: 20221108
  Receipt Date: 20221108
  Transmission Date: 20230112
  Serious: Yes (Other)
  Sender: FDA-Public Use
  Company Number: US-ABBVIE-4190633

PATIENT
  Sex: Female

DRUGS (10)
  1. IMBRUVICA [Suspect]
     Active Substance: IBRUTINIB
     Indication: Chronic lymphocytic leukaemia
     Route: 048
     Dates: start: 20220907
  2. Centrum Silver Oral Tablet [Concomitant]
     Indication: Product used for unknown indication
  3. Lovastatin Oral Tablet 10 MG [Concomitant]
     Indication: Product used for unknown indication
  4. Duloxetine HCl Oral Capsule Delayed 20 mg [Concomitant]
     Indication: Product used for unknown indication
  5. Stool Softener Oral Capsule 100 MG [Concomitant]
     Indication: Product used for unknown indication
  6. Tylenol Extra Strength Oral Tablet 500 mg [Concomitant]
     Indication: Product used for unknown indication
  7. Lisinopril Oral Tablet 20 MG [Concomitant]
     Indication: Product used for unknown indication
  8. Granisetron HCl Oral Tablet 1 MG [Concomitant]
     Indication: Product used for unknown indication
  9. Acyclovir Oral Tablet 400 MG [Concomitant]
     Indication: Product used for unknown indication
  10. Gabapentin Oral Capsule 100 MG [Concomitant]
     Indication: Product used for unknown indication

REACTIONS (1)
  - Chronic lymphocytic leukaemia recurrent [Unknown]
